FAERS Safety Report 5278604-6 (Version None)
Quarter: 2007Q1

REPORT INFORMATION
  Report Type: 
  Country: None (occurrence: None)
  Receive Date: 20070328
  Receipt Date: 20070323
  Transmission Date: 20070707
  Serious: Yes (Life-Threatening, Hospitalization)
  Sender: FDA-Public Use
  Company Number: JP-GLAXOSMITHKLINE-B0443599A

PATIENT
  Sex: Female
  Weight: 40 kg

DRUGS (2)
  1. PAXIL [Suspect]
     Indication: SOCIAL PHOBIA
     Dosage: 20MG PER DAY
     Route: 048
     Dates: start: 20061002, end: 20061003
  2. GASMOTIN [Concomitant]
     Indication: PROPHYLAXIS
     Dosage: 5MG PER DAY
     Route: 048
     Dates: start: 20061002, end: 20061002

REACTIONS (8)
  - CONFUSIONAL STATE [None]
  - DELUSION [None]
  - DIZZINESS [None]
  - HALLUCINATION, AUDITORY [None]
  - INSOMNIA [None]
  - NAUSEA [None]
  - RESTLESSNESS [None]
  - SUICIDE ATTEMPT [None]
